FAERS Safety Report 9091882 (Version 4)
Quarter: 2013Q4

REPORT INFORMATION
  Report Type: Spontaneous
  Country: DE (occurrence: ES)
  Receive Date: 20130131
  Receipt Date: 20131209
  Transmission Date: 20140711
  Serious: Yes (Other)
  Sender: FDA-Public Use
  Company Number: ES-B.I. PHARMACEUTICALS,INC./RIDGEFIELD-2012-DE-03098DE

PATIENT
  Age: 69 Year
  Sex: Female
  Weight: 65 kg

DRUGS (6)
  1. CATAPRESAN [Suspect]
     Indication: HYPERTENSION
     Dosage: 3 ANZ
  2. MICARDIS PLUS [Suspect]
     Indication: HYPERTENSION
     Dosage: 1 ANZ
     Dates: start: 20121116, end: 20121119
  3. MICARDIS PLUS [Suspect]
     Dosage: 1 ANZ
     Route: 048
     Dates: start: 20121119
  4. METOPROLOL [Concomitant]
     Indication: HYPERTENSION
     Dosage: 2 ANZ
  5. FURORESE [Concomitant]
     Indication: FLUID RETENTION
     Dosage: 1 ANZ
  6. LONOX [Concomitant]
     Indication: HYPERTENSION

REACTIONS (4)
  - Blood pressure increased [Unknown]
  - Drug ineffective [Unknown]
  - Infection [Unknown]
  - Medication error [Unknown]
